FAERS Safety Report 4967353-7 (Version None)
Quarter: 2006Q2

REPORT INFORMATION
  Report Type: 
  Country: None (occurrence: None)
  Receive Date: 20060404
  Receipt Date: 20060328
  Transmission Date: 20061013
  Serious: Yes (Hospitalization)
  Sender: FDA-Public Use
  Company Number: TPG2006A00175

PATIENT
  Age: 45 Year
  Sex: Female

DRUGS (2)
  1. TRANANTONE (LEUPROLIDE ACETATE) (11.25 MILLIGRAM, INJECTION) [Suspect]
     Indication: BREAST CANCER
     Dosage: 11.25 MG (11.25 MG, 1 IN 3 M)
     Route: 058
     Dates: start: 20051017
  2. CONTRACEPTIVE (HORMONAL CONTRACEPTIVES FOR SYSTEMIC USE) [Concomitant]

REACTIONS (1)
  - OVARIAN ADENOMA [None]
